FAERS Safety Report 7965451-7 (Version None)
Quarter: 2011Q4

REPORT INFORMATION
  Report Type: 
  Country: None (occurrence: None)
  Receive Date: 20111205
  Receipt Date: 20111121
  Transmission Date: 20120403
  Serious: Yes (Other)
  Sender: FDA-Public Use
  Company Number: 1000025783

PATIENT
  Age: 31 Year
  Sex: Female
  Weight: 80 kg

DRUGS (6)
  1. ESCITALOPRAM OXALATE [Suspect]
     Indication: PANIC DISORDER
     Dosage: SEE IMAGE
     Route: 048
     Dates: start: 20100821
  2. ESCITALOPRAM OXALATE [Suspect]
     Indication: PANIC DISORDER
     Dosage: SEE IMAGE
     Route: 048
     Dates: end: 20110511
  3. ESCITALOPRAM OXALATE [Suspect]
     Indication: PANIC DISORDER
     Dosage: SEE IMAGE
     Route: 048
     Dates: start: 20100821, end: 20110511
  4. EMBOLEX [Suspect]
     Indication: THROMBOSIS PROPHYLAXIS
     Dosage: 3000 IU, SUBCUTANEOUS
     Route: 058
     Dates: start: 20100920, end: 20110511
  5. ACETAMINOPHEN [Suspect]
     Indication: PAIN
     Dosage: (500 MG, AS NEEDED), ORAL
     Route: 048
  6. FEMIBION (FOLIC ACID) (FOLIC ACID) [Concomitant]

REACTIONS (5)
  - PREGNANCY [None]
  - CAMPYLOBACTER INFECTION [None]
  - MATERNAL DRUGS AFFECTING FOETUS [None]
  - INDUCED LABOUR [None]
  - SINUSITIS [None]
